FAERS Safety Report 6417814-9 (Version None)
Quarter: 2009Q4

REPORT INFORMATION
  Report Type: 
  Country: None (occurrence: None)
  Receive Date: 20091026
  Receipt Date: 20091013
  Transmission Date: 20100525
  Serious: Yes (Death, Other)
  Sender: FDA-Public Use
  Company Number: ADR37752009

PATIENT
  Age: 94 Year
  Sex: Female

DRUGS (17)
  1. SIMVASTATIN [Suspect]
     Indication: TRANSIENT ISCHAEMIC ATTACK
     Dosage: 40 MG ORAL
     Route: 048
     Dates: start: 20070412, end: 20071112
  2. AMIODARONE HCL [Concomitant]
  3. BECLOMETHASONE DIPROPIONATE [Concomitant]
  4. BENFROFLUMETHIAZIDE [Concomitant]
  5. BISPROLOL [Concomitant]
  6. CALCIUM GLUCONATE [Concomitant]
  7. CARBOMER [Concomitant]
  8. CO-CODAMOL [Concomitant]
  9. DIGOXIN [Concomitant]
  10. FERROUS SULFATE TAB [Concomitant]
  11. IPRATROPIUM [Concomitant]
  12. NULYTELY [Concomitant]
  13. OMEPRAZOLE [Concomitant]
  14. RAMIPRIL [Concomitant]
  15. ALBUTEROL [Concomitant]
  16. SERETIDE [Concomitant]
  17. WARFARIN SODIUM [Concomitant]

REACTIONS (6)
  - ASTHENIA [None]
  - ATRIAL FIBRILLATION [None]
  - BLOOD ALBUMIN DECREASED [None]
  - HEPATIC FAILURE [None]
  - INTERNATIONAL NORMALISED RATIO INCREASED [None]
  - PNEUMONIA [None]
